FAERS Safety Report 11715163 (Version 4)
Quarter: 2015Q4

REPORT INFORMATION
  Report Type: Spontaneous
  Country: FR (occurrence: FR)
  Receive Date: 20151109
  Receipt Date: 20151223
  Transmission Date: 20160304
  Serious: Yes (Death, Other)
  Sender: FDA-Public Use
  Company Number: FR-FERRINGPH-2015FE03831

PATIENT

DRUGS (7)
  1. TARDYFERON B9                      /00023601/ [Concomitant]
     Active Substance: FERROUS SULFATE\FOLIC ACID
     Indication: GASTRIC BYPASS
     Route: 064
  2. MAGNE B6                           /00869101/ [Concomitant]
     Indication: GASTRIC BYPASS
     Route: 064
  3. KALINOX [Concomitant]
     Active Substance: NITROUS OXIDE
     Indication: GASTRIC BYPASS
     Dosage: UNK
     Route: 064
  4. PROPESS [Suspect]
     Active Substance: DINOPROSTONE
     Indication: LABOUR INDUCTION
     Dosage: 10 MG, ONCE/SINGLE
     Route: 064
     Dates: start: 20150916, end: 20150917
  5. ALVITYL                            /02362701/ [Concomitant]
     Indication: GASTRIC BYPASS
     Route: 064
  6. VITAMIN D                          /00107901/ [Concomitant]
     Active Substance: ERGOCALCIFEROL
     Indication: GASTRIC BYPASS
     Route: 064
  7. NUBAINA                            /00534801/ [Concomitant]
     Indication: ANALGESIC THERAPY
     Dosage: 20 UNK, UNK
     Route: 064
     Dates: start: 20150916

REACTIONS (7)
  - Foetal death [Fatal]
  - Foetal monitoring abnormal [Unknown]
  - Contraindicated drug administered [Unknown]
  - Maternal drugs affecting foetus [None]
  - Caesarean section [None]
  - Incorrect drug administration duration [None]
  - Placental disorder [None]

NARRATIVE: CASE EVENT DATE: 20150916
